FAERS Safety Report 18414772 (Version 1)
Quarter: 2020Q4

REPORT INFORMATION
  Report Type: Other
  Country: US (occurrence: US)
  Receive Date: 20201022
  Receipt Date: 20201022
  Transmission Date: 20210114
  Serious: Yes (Other)
  Sender: FDA-Public Use
  Company Number: US-ROCHE-1961855

PATIENT
  Age: 33 Year
  Sex: Female
  Weight: 40.41 kg

DRUGS (9)
  1. GABAPENTIN. [Concomitant]
     Active Substance: GABAPENTIN
     Indication: NEUROPATHY PERIPHERAL
     Dosage: PILL?ONGOING: YES
     Route: 048
     Dates: start: 2006
  2. OCREVUS [Suspect]
     Active Substance: OCRELIZUMAB
     Dosage: INFUSE 300 MG DAY 1, THEN 300 MG DAY 15
     Route: 065
  3. TAMIFLU [Suspect]
     Active Substance: OSELTAMIVIR PHOSPHATE
     Indication: INFLUENZA
     Dosage: PILLS
     Route: 048
     Dates: start: 20191230, end: 20191230
  4. TAMIFLU [Suspect]
     Active Substance: OSELTAMIVIR PHOSPHATE
     Indication: INFLUENZA
     Dosage: ONGOING-NO
     Route: 048
     Dates: start: 2020, end: 2020
  5. TERIPARATIDE [Concomitant]
     Active Substance: TERIPARATIDE
     Indication: OSTEOPOROSIS
     Dosage: ONGOING: YES
     Route: 058
     Dates: start: 201806
  6. RITUXAN [Suspect]
     Active Substance: RITUXIMAB
     Indication: RELAPSING-REMITTING MULTIPLE SCLEROSIS
     Dosage: ONGOING: NO
     Route: 042
     Dates: start: 2015, end: 2017
  7. XOFLUZA [Concomitant]
     Active Substance: BALOXAVIR MARBOXIL
     Indication: INFLUENZA
     Dosage: PILLS?ONGOING: NO; ONE-TIME DOSE
     Route: 048
  8. OCREVUS [Suspect]
     Active Substance: OCRELIZUMAB
     Indication: RELAPSING-REMITTING MULTIPLE SCLEROSIS
     Dosage: ONGOING-YES
     Route: 042
     Dates: start: 2018
  9. ESOMEPRAZOLE. [Concomitant]
     Active Substance: ESOMEPRAZOLE MAGNESIUM
     Indication: GASTROOESOPHAGEAL REFLUX DISEASE
     Dosage: PILL
     Route: 048
     Dates: start: 2019

REACTIONS (11)
  - Vomiting [Recovered/Resolved]
  - Influenza [Recovered/Resolved]
  - Intentional product use issue [Unknown]
  - Gastrooesophageal reflux disease [Not Recovered/Not Resolved]
  - Asthenia [Not Recovered/Not Resolved]
  - Nausea [Recovered/Resolved]
  - Drug hypersensitivity [Not Recovered/Not Resolved]
  - Hypoaesthesia [Not Recovered/Not Resolved]
  - Off label use [Unknown]
  - Cough [Recovered/Resolved]
  - Gastric cancer [Unknown]

NARRATIVE: CASE EVENT DATE: 2018
